FAERS Safety Report 17143621 (Version 2)
Quarter: 2019Q4

REPORT INFORMATION
  Report Type: Spontaneous
  Country: SE (occurrence: SE)
  Receive Date: 20191211
  Receipt Date: 20191226
  Transmission Date: 20200122
  Serious: Yes (Hospitalization)
  Sender: FDA-Public Use
  Company Number: SE-AUROBINDO-AUR-APL-2019-104561

PATIENT
  Sex: Male

DRUGS (2)
  1. PROPAVAN [Suspect]
     Active Substance: PROPIOMAZINE
     Indication: PRODUCT USED FOR UNKNOWN INDICATION
     Dosage: UNK, 15 PCS OF 25 MG, IN TWO ROUNDS FOR TWO HOURS
     Route: 048
     Dates: start: 20180723, end: 20180723
  2. OLANZAPINE. [Suspect]
     Active Substance: OLANZAPINE
     Indication: PRODUCT USED FOR UNKNOWN INDICATION
     Dosage: POSSIBLY TAKEN OLANZAPINE
     Route: 065
     Dates: start: 20180723, end: 20180723

REACTIONS (3)
  - Unevaluable event [Unknown]
  - Gait disturbance [Unknown]
  - Intentional overdose [Unknown]

NARRATIVE: CASE EVENT DATE: 20180723
